FAERS Safety Report 13198577 (Version 3)
Quarter: 2017Q1

REPORT INFORMATION
  Report Type: Spontaneous
  Country: AU (occurrence: AU)
  Receive Date: 20170208
  Receipt Date: 20170224
  Transmission Date: 20170428
  Serious: Yes (Death, Hospitalization, Other)
  Sender: FDA-Public Use
  Company Number: AU-009507513-1702AUS002333

PATIENT
  Sex: Female
  Weight: 87 kg

DRUGS (3)
  1. NEXIUM I.V. [Concomitant]
     Active Substance: ESOMEPRAZOLE SODIUM
  2. LIPITOR [Concomitant]
     Active Substance: ATORVASTATIN CALCIUM
  3. JANUVIA [Suspect]
     Active Substance: SITAGLIPTIN PHOSPHATE
     Indication: TYPE 2 DIABETES MELLITUS
     Dosage: UNK, QD
     Route: 048
     Dates: start: 20100414, end: 201511

REACTIONS (8)
  - Cardiac failure congestive [Recovered/Resolved]
  - Death [Fatal]
  - Renal impairment [Unknown]
  - Left ventricular failure [Unknown]
  - Bundle branch block left [Unknown]
  - Acute pulmonary oedema [Recovered/Resolved]
  - Myocardial infarction [Unknown]
  - Pleural effusion [Unknown]

NARRATIVE: CASE EVENT DATE: 2015
